FAERS Safety Report 5369656-3 (Version None)
Quarter: 2007Q2

REPORT INFORMATION
  Report Type: 
  Country: None (occurrence: None)
  Receive Date: 20070625
  Receipt Date: 20070613
  Transmission Date: 20071010
  Serious: Yes (Other)
  Sender: FDA-Public Use
  Company Number: UY-PFIZER INC-2007040556

PATIENT
  Sex: Female

DRUGS (5)
  1. CHAMPIX [Suspect]
     Indication: SMOKING CESSATION THERAPY
     Route: 048
  2. SERTRALINE [Concomitant]
     Route: 048
  3. ACETYLSALICYLIC ACID SRT [Concomitant]
     Route: 048
  4. ANTIHYPERTENSIVES [Concomitant]
     Route: 048
  5. ATORVASTATIN [Concomitant]
     Route: 048

REACTIONS (2)
  - FALL [None]
  - SYNCOPE [None]
